FAERS Safety Report 5249271-2 (Version None)
Quarter: 2007Q1

REPORT INFORMATION
  Report Type: 
  Country: None (occurrence: None)
  Receive Date: 20070228
  Receipt Date: 20070220
  Transmission Date: 20070707
  Serious: Yes (Other)
  Sender: FDA-Public Use
  Company Number: FR-ROCHE-483651

PATIENT
  Sex: Male

DRUGS (2)
  1. PEGASYS [Suspect]
     Indication: HEPATITIS C
     Dosage: FORM REPORTED AS INJECTABLE SOLUTION.
     Route: 065
  2. COPEGUS [Suspect]
     Indication: HEPATITIS C
     Route: 065

REACTIONS (2)
  - ASTHMATIC CRISIS [None]
  - INJECTION SITE REACTION [None]
